FAERS Safety Report 11215830 (Version 1)
Quarter: 2015Q2

REPORT INFORMATION
  Report Type: Spontaneous
  Country: US (occurrence: None)
  Receive Date: 20150623
  Receipt Date: 20150623
  Transmission Date: 20150821
  Serious: Yes (Hospitalization)
  Sender: FDA-Public Use
  Company Number: None

PATIENT
  Age: 61 Year
  Sex: Male
  Weight: 90.9 kg

DRUGS (10)
  1. ONDANSETRON [Concomitant]
     Active Substance: ONDANSETRON
  2. HARVONI [Suspect]
     Active Substance: LEDIPASVIR\SOFOSBUVIR
     Indication: HEPATITIS C
     Dosage: 90 LEDIPASVIR / 400 SOFOSBUVIR 1 X DAILY PO
     Route: 048
     Dates: end: 20150308
  3. MAGNESIUM [Concomitant]
     Active Substance: MAGNESIUM
  4. OXYCODONE [Concomitant]
     Active Substance: OXYCODONE
  5. ALDACTONE [Concomitant]
     Active Substance: SPIRONOLACTONE
  6. CALCIUM CARBONATE. [Concomitant]
     Active Substance: CALCIUM CARBONATE
  7. MOVIPREP [Concomitant]
     Active Substance: ASCORBIC ACID\POLYETHYLENE GLYCOL 3350\POTASSIUM CHLORIDE\SODIUM ASCORBATE\SODIUM CHLORIDE\SODIUM SULFATE
  8. ATENOLOL. [Concomitant]
     Active Substance: ATENOLOL
  9. FUROSEMIDE. [Concomitant]
     Active Substance: FUROSEMIDE
  10. METOLAZON [Concomitant]
     Active Substance: METOLAZONE

REACTIONS (11)
  - Fluid overload [None]
  - Abdominal distension [None]
  - Cough [None]
  - Anxiety [None]
  - Generalised oedema [None]
  - Pharyngeal oedema [None]
  - Tachypnoea [None]
  - Tachycardia [None]
  - Pain in extremity [None]
  - Dyspnoea [None]
  - Agitation [None]

NARRATIVE: CASE EVENT DATE: 20150106
